FAERS Safety Report 10908035 (Version 1)
Quarter: 2015Q1

REPORT INFORMATION
  Report Type: Spontaneous
  Country: US (occurrence: None)
  Receive Date: 20150309
  Receipt Date: 20150309
  Transmission Date: 20150721
  Serious: Yes (Hospitalization)
  Sender: FDA-Public Use
  Company Number: None

PATIENT
  Age: 87 Year
  Sex: Male
  Weight: 88.6 kg

DRUGS (1)
  1. ABIRATERONE [Suspect]
     Active Substance: ABIRATERONE
     Indication: PROSTATE CANCER
     Route: 048
     Dates: start: 20131120, end: 20141013

REACTIONS (6)
  - Brain mass [None]
  - Decreased appetite [None]
  - Mental status changes [None]
  - Hypokalaemia [None]
  - Asthenia [None]
  - Meningioma [None]

NARRATIVE: CASE EVENT DATE: 20141013
